FAERS Safety Report 9117176 (Version 2)
Quarter: 2013Q1

REPORT INFORMATION
  Report Type: Spontaneous
  Country: IT (occurrence: IT)
  Receive Date: 20130208
  Receipt Date: 20130329
  Transmission Date: 20140127
  Serious: Yes (Hospitalization)
  Sender: FDA-Public Use
  Company Number: IT-ELI_LILLY_AND_COMPANY-IT201301009629

PATIENT
  Sex: Female

DRUGS (3)
  1. TERIPARATIDE [Suspect]
     Indication: OSTEOPOROSIS
     Dosage: UNK
     Route: 058
     Dates: start: 20110210, end: 20120301
  2. FLECAINIDE [Concomitant]
     Indication: ARRHYTHMIA
     Route: 048
  3. TRIATEC [Concomitant]
     Indication: HYPERTENSION
     Route: 048

REACTIONS (1)
  - Myopathy [Recovered/Resolved]
